FAERS Safety Report 22085964 (Version 1)
Quarter: 2023Q1

REPORT INFORMATION
  Report Type: Spontaneous
  Country: US (occurrence: None)
  Receive Date: 20230310
  Receipt Date: 20230310
  Transmission Date: 20230418
  Serious: No
  Sender: FDA-Public Use
  Company Number: None

PATIENT
  Age: 8 Year
  Sex: Male

DRUGS (1)
  1. NEXAVAR [Suspect]
     Active Substance: SORAFENIB
     Dosage: 200MG DAILY ORAL?
     Route: 048

REACTIONS (2)
  - Disease progression [None]
  - Septic shock [None]

NARRATIVE: CASE EVENT DATE: 20230309
